FAERS Safety Report 10977129 (Version 1)
Quarter: 2015Q1

REPORT INFORMATION
  Report Type: Spontaneous
  Country: FR (occurrence: None)
  Receive Date: 20150330
  Receipt Date: 20150330
  Transmission Date: 20150721
  Serious: Yes (Death, Life-Threatening, Hospitalization)
  Sender: FDA-Public Use
  Company Number: FR-H14001-15-00483

PATIENT
  Age: 64 Year
  Sex: Male
  Weight: 83 kg

DRUGS (2)
  1. CERUBIDINE [Suspect]
     Active Substance: DAUNORUBICIN HYDROCHLORIDE
     Indication: ACUTE MYELOID LEUKAEMIA
     Route: 042
     Dates: start: 20100227, end: 20100228
  2. ARACYTINE [Suspect]
     Active Substance: CYTARABINE
     Indication: ACUTE MYELOID LEUKAEMIA
     Dosage: 1940 MG, 1 IN 12 HR; 6 INFUSIONS
     Dates: start: 20100227, end: 20100303

REACTIONS (45)
  - Escherichia infection [None]
  - Hypotension [None]
  - Drug intolerance [None]
  - Candida sepsis [None]
  - Disseminated intravascular coagulation [None]
  - Cardiac failure [None]
  - Tachycardia [None]
  - Bacterial translocation [None]
  - Ascites [None]
  - Blood triglycerides increased [None]
  - Dehydration [None]
  - Renal failure [None]
  - Seizure [None]
  - Mitral valve incompetence [None]
  - Altered state of consciousness [None]
  - Hepatic pain [None]
  - Urosepsis [None]
  - Bone marrow failure [None]
  - Tachypnoea [None]
  - Cough [None]
  - Left atrial dilatation [None]
  - Pleural effusion [None]
  - Anaemia [None]
  - Blood pressure fluctuation [None]
  - Nephropathy toxic [None]
  - Histiocytosis haematophagic [None]
  - Multi-organ failure [None]
  - Lactic acidosis [None]
  - Pericardial effusion [None]
  - Dialysis [None]
  - Diarrhoea [None]
  - Pyrexia [None]
  - Polyserositis [None]
  - Pulmonary sepsis [None]
  - Bronchopulmonary aspergillosis [None]
  - Septic shock [None]
  - Hypoventilation [None]
  - Constipation [None]
  - Gastrointestinal polyp haemorrhage [None]
  - Respiratory failure [None]
  - Haemodynamic instability [None]
  - Livedo reticularis [None]
  - Bacterial infection [None]
  - Platelet count decreased [None]
  - Neurological decompensation [None]

NARRATIVE: CASE EVENT DATE: 2010
